FAERS Safety Report 19212228 (Version 1)
Quarter: 2021Q2

REPORT INFORMATION
  Report Type: Spontaneous
  Country: US (occurrence: US)
  Receive Date: 20210504
  Receipt Date: 20210504
  Transmission Date: 20210717
  Serious: Yes (Life-Threatening, Hospitalization)
  Sender: FDA-Public Use
  Company Number: None

PATIENT
  Age: 65 Year
  Sex: Male
  Weight: 105 kg

DRUGS (15)
  1. LOSARTAN 100MG DAILY [Concomitant]
     Active Substance: LOSARTAN
  2. OMEPRAZOLE 20MG DAILY [Concomitant]
  3. ASCORBIC ACID 1000MG DAILY [Concomitant]
  4. CARVEDLOL 25MG [Concomitant]
  5. COLESTIPOL 1G 2 BID [Concomitant]
  6. DOCETAXEL. [Suspect]
     Active Substance: DOCETAXEL
     Indication: NON-SMALL CELL LUNG CANCER
     Dosage: ?          OTHER FREQUENCY:Q3WEEKS;?
     Route: 042
     Dates: start: 20210407, end: 20210428
  7. HYDRALAZINE 25MG BID [Concomitant]
  8. CANAGLIFLOZIN 300MG DAILY [Concomitant]
  9. GABAPENTIN 300MG TID [Concomitant]
  10. OXYCODONE ER 10MG Q12H [Concomitant]
  11. METFORMIN 500MG DAILY WITH DINNER [Concomitant]
  12. ONDANSETRON 4MG Q8H PRN NAUSEA [Concomitant]
  13. FUROSEMIDE 60MG BID [Concomitant]
  14. FOLIC ACID 1MG PO DAILY [Concomitant]
  15. PREDNISONE TAPER PRIOR TO CHEMO [Concomitant]

REACTIONS (1)
  - Cardiac arrest [None]

NARRATIVE: CASE EVENT DATE: 20210428
